FAERS Safety Report 6162784-4 (Version None)
Quarter: 2009Q2

REPORT INFORMATION
  Report Type: 
  Country: None (occurrence: None)
  Receive Date: 20090421
  Receipt Date: 20080709
  Transmission Date: 20091009
  Serious: No
  Sender: FDA-Public Use
  Company Number: US-ASTRAZENECA-2008UW13767

PATIENT
  Age: 61 Year
  Sex: Male
  Weight: 72.1 kg

DRUGS (8)
  1. TOPROL-XL [Suspect]
     Indication: ATRIAL FIBRILLATION
     Dosage: 25 MG
     Route: 048
  2. TOPROL-XL [Suspect]
     Dosage: 25 MG -GENERIC
     Route: 048
  3. TOPROL-XL [Suspect]
     Dosage: 25 MG
     Route: 048
  4. PLAVIX [Concomitant]
  5. ZESTRIL [Concomitant]
     Route: 048
  6. ASPIRIN [Concomitant]
  7. LESCOL [Concomitant]
  8. WELCHOL [Concomitant]
     Dosage: 3 PILLS

REACTIONS (1)
  - ATRIAL FIBRILLATION [None]
